APPROVED DRUG PRODUCT: BENOQUIN
Active Ingredient: MONOBENZONE
Strength: 20%
Dosage Form/Route: CREAM;TOPICAL
Application: N008173 | Product #003
Applicant: VALEANT PHARMACEUTICALS INTERNATIONAL
Approved: Approved Prior to Jan 1, 1982 | RLD: No | RS: No | Type: DISCN